FAERS Safety Report 6635553-6 (Version None)
Quarter: 2010Q1

REPORT INFORMATION
  Report Type: 
  Country: None (occurrence: None)
  Receive Date: 20100315
  Receipt Date: 20100107
  Transmission Date: 20100710
  Serious: No
  Sender: FDA-Public Use
  Company Number: US-ABBOTT-10P-163-0618881-00

PATIENT
  Sex: Male

DRUGS (2)
  1. DEPAKOTE [Suspect]
     Indication: MIGRAINE
     Route: 048
     Dates: start: 20040101, end: 20080101
  2. DIVALPROEX SODIUM [Suspect]
     Indication: MIGRAINE
     Dates: start: 20080101

REACTIONS (1)
  - LIVER FUNCTION TEST ABNORMAL [None]
